FAERS Safety Report 22239022 (Version 1)
Quarter: 2023Q2

REPORT INFORMATION
  Report Type: Spontaneous
  Country: AU (occurrence: AU)
  Receive Date: 20230421
  Receipt Date: 20230421
  Transmission Date: 20230722
  Serious: Yes (Hospitalization, Other)
  Sender: FDA-Public Use
  Company Number: AU-AMGEN-AUSSP2019221325

PATIENT
  Age: 70 Year
  Sex: Male

DRUGS (3)
  1. ARANESP [Suspect]
     Active Substance: DARBEPOETIN ALFA
     Indication: Product used for unknown indication
     Dosage: 40 MILLIGRAM/ 0.4 ML, Q2WK
     Route: 058
     Dates: start: 201811
  2. ARANESP [Suspect]
     Active Substance: DARBEPOETIN ALFA
     Dosage: 40 MILLIGRAM/ 0.4 ML, Q2WK
     Route: 058
  3. ARANESP [Suspect]
     Active Substance: DARBEPOETIN ALFA
     Dosage: 40 MILLIGRAM/ 0.4 ML, QMO
     Route: 058
     Dates: start: 201905

REACTIONS (4)
  - Brain injury [Unknown]
  - Dementia [Unknown]
  - Incorrect dose administered by device [Unknown]
  - Device use error [Unknown]

NARRATIVE: CASE EVENT DATE: 20190829
